FAERS Safety Report 18756474 (Version 1)
Quarter: 2021Q1

REPORT INFORMATION
  Report Type: Spontaneous
  Country: JP (occurrence: JP)
  Receive Date: 20210119
  Receipt Date: 20210119
  Transmission Date: 20210419
  Serious: Yes (Life-Threatening, Other)
  Sender: FDA-Public Use
  Company Number: JP-ASTRAZENECA-2021A006343

PATIENT
  Age: 64 Year
  Sex: Female

DRUGS (1)
  1. IRESSA [Suspect]
     Active Substance: GEFITINIB
     Indication: LUNG ADENOCARCINOMA
     Route: 048
     Dates: start: 201712, end: 2018

REACTIONS (6)
  - Liver disorder [Unknown]
  - Second primary malignancy [Unknown]
  - Pulmonary mass [Unknown]
  - Metastases to lung [Unknown]
  - Metastases to spine [Unknown]
  - Gene mutation [Unknown]

NARRATIVE: CASE EVENT DATE: 2018
